FAERS Safety Report 10167709 (Version 3)
Quarter: 2014Q2

REPORT INFORMATION
  Report Type: Spontaneous
  Country: US (occurrence: None)
  Receive Date: 20140508
  Receipt Date: 20140604
  Transmission Date: 20141212
  Serious: Yes (Hospitalization)
  Sender: FDA-Public Use
  Company Number: UTC-048124

PATIENT
  Age: 71 Year
  Sex: Male
  Weight: 89.8 kg

DRUGS (12)
  1. TYVASO [Suspect]
     Indication: PULMONARY ARTERIAL HYPERTENSION
     Route: 055
     Dates: start: 20120918
  2. PRAVASTATIN (PRAVASTATIN) [Concomitant]
  3. METAMUCIL /00029101/ (PLANTAGO OVATA) [Concomitant]
  4. TANSULOSINA (TAMSULOSIN HYDROCHLORIDE) [Concomitant]
  5. SPIRIVA [Concomitant]
  6. ASPIRIN (ACETYLSALICYLIC ACID) [Concomitant]
  7. TUMS /00193601/ (CALCIUM CARBONATE, MAGNESIUM CARBONATE, MAGNESIUM TRISILICATE) [Concomitant]
  8. FINASTERIDE (FINASTERIDE) [Concomitant]
  9. ADVAIR HFA (FLUTICASONE PROPIONATE, SALMETEROL XINAFOATE) [Concomitant]
  10. MULTI-VITAMINS VITAFIT (CALCIUM PANTOTHENATE, FOLIC ACID, VITAMINS NOS) [Concomitant]
  11. MIRALAX /00754501/ (MACROGOL) [Concomitant]
  12. TRACLEER (BOSENTAN) [Concomitant]

REACTIONS (8)
  - Headache [None]
  - Tremor [None]
  - Oxygen saturation decreased [None]
  - Constipation [None]
  - Dyspnoea [None]
  - Dizziness [None]
  - Urinary incontinence [None]
  - Pallor [None]
